FAERS Safety Report 9701788 (Version 1)
Quarter: 2013Q4

REPORT INFORMATION
  Report Type: Spontaneous
  Country: US (occurrence: None)
  Receive Date: 20131120
  Receipt Date: 20131120
  Transmission Date: 20140711
  Serious: Yes (Hospitalization)
  Sender: FDA-Public Use
  Company Number: None

PATIENT
  Sex: Female
  Weight: 83 kg

DRUGS (4)
  1. 5-FLUOROURACIL (5-FU) [Suspect]
  2. BEVACIZUMAB (RTU MAB VEGF) [Suspect]
  3. LEUCOVORIN CALCIUM [Suspect]
  4. OXALIPLATIN (ELOXATIN) [Suspect]

REACTIONS (4)
  - Febrile neutropenia [None]
  - Urinary tract infection [None]
  - White blood cell count decreased [None]
  - Hypokalaemia [None]
